FAERS Safety Report 25768674 (Version 1)
Quarter: 2025Q3

REPORT INFORMATION
  Report Type: Spontaneous
  Country: US (occurrence: US)
  Receive Date: 20250905
  Receipt Date: 20250905
  Transmission Date: 20251020
  Serious: Yes (Hospitalization, Other)
  Sender: GLAXOSMITHKLINE
  Company Number: US-GSK-US2025108038

PATIENT
  Age: 78 Year
  Sex: Female

DRUGS (1)
  1. MOMELOTINIB [Suspect]
     Active Substance: MOMELOTINIB
     Indication: Myelofibrosis

REACTIONS (3)
  - Hospitalisation [Unknown]
  - Hypotension [Recovered/Resolved]
  - Condition aggravated [Unknown]
